FAERS Safety Report 8243128-0 (Version None)
Quarter: 2012Q1

REPORT INFORMATION
  Report Type: 
  Country: None (occurrence: None)
  Receive Date: 20120329
  Receipt Date: 20120305
  Transmission Date: 20120608
  Serious: Yes (Other)
  Sender: FDA-Public Use
  Company Number: TR-BAYER-2012-030308

PATIENT

DRUGS (7)
  1. DICLOFENAC SODIUM [Concomitant]
     Route: 064
  2. ANTIDEPRESSANTS [Concomitant]
     Route: 064
  3. BETASERON [Suspect]
     Route: 064
  4. CARDIAC MEDICATION [Concomitant]
     Route: 064
  5. MINOSET PLUS [Concomitant]
     Route: 064
  6. MODAFANIL [Concomitant]
     Route: 064
  7. ESCITALOPRAM [Concomitant]
     Route: 064

REACTIONS (1)
  - LIGAMENT SPRAIN [None]
